FAERS Safety Report 8019267-6 (Version None)
Quarter: 2012Q1

REPORT INFORMATION
  Report Type: 
  Country: None (occurrence: None)
  Receive Date: 20120103
  Receipt Date: 20111227
  Transmission Date: 20120608
  Serious: Yes (Death, Other)
  Sender: FDA-Public Use
  Company Number: JP-CELGENEUS-087-50794-11123739

PATIENT
  Sex: Female
  Weight: 45 kg

DRUGS (62)
  1. MUCODYNE [Concomitant]
     Route: 065
     Dates: end: 20110813
  2. LASIX [Concomitant]
     Route: 065
     Dates: start: 20110505, end: 20110815
  3. LEVOFLOXACIN [Concomitant]
     Route: 065
     Dates: start: 20110520, end: 20110706
  4. POTASSIUM L-ASPARTATE [Concomitant]
     Route: 065
     Dates: start: 20110611, end: 20110813
  5. GRANISETRON HCL [Concomitant]
     Route: 065
     Dates: start: 20110428, end: 20110720
  6. VIDAZA [Suspect]
     Dosage: 100 MILLIGRAM
     Route: 041
     Dates: start: 20110421, end: 20110427
  7. GARENOXACIN MESYLATE [Concomitant]
     Route: 065
     Dates: start: 20110425, end: 20110429
  8. THEO-DUR [Concomitant]
     Route: 065
     Dates: end: 20110813
  9. HEMLON [Concomitant]
     Route: 065
     Dates: start: 20110708, end: 20110711
  10. CLOPERASTINE FENDIZOATE [Concomitant]
     Route: 065
     Dates: start: 20110608, end: 20110813
  11. GRAN [Concomitant]
     Route: 065
     Dates: start: 20110526, end: 20110605
  12. ATARAX [Concomitant]
     Route: 065
     Dates: start: 20110527, end: 20110527
  13. PREDNISOLONE [Concomitant]
     Route: 065
     Dates: start: 20110704, end: 20110713
  14. SEKINARIN [Concomitant]
     Route: 065
     Dates: start: 20110711
  15. AMBISOME [Concomitant]
     Route: 065
     Dates: end: 20110813
  16. HANP [Concomitant]
     Route: 065
     Dates: start: 20110813, end: 20110815
  17. INDOMETHACIN [Concomitant]
     Route: 065
     Dates: start: 20110510
  18. PRAVASTATIN SODIUM [Concomitant]
     Route: 065
     Dates: end: 20110813
  19. ZOSYN [Concomitant]
     Route: 065
     Dates: start: 20110811, end: 20110813
  20. ONDANSETRON HYDROCHLORIDE HYDRATE [Concomitant]
     Route: 065
     Dates: start: 20110615, end: 20110802
  21. VEEN-D [Concomitant]
     Route: 065
     Dates: start: 20110708, end: 20110715
  22. ADONA [Concomitant]
     Route: 065
     Dates: start: 20110708, end: 20110711
  23. ANTEBATE [Concomitant]
     Route: 065
     Dates: start: 20110506
  24. LENDORMIN [Concomitant]
     Route: 065
     Dates: start: 20110524
  25. PREDNISOLONE [Concomitant]
     Route: 065
     Dates: start: 20110610, end: 20110630
  26. GASCON [Concomitant]
     Route: 065
     Dates: start: 20110421, end: 20110427
  27. VFEND [Concomitant]
     Route: 065
     Dates: start: 20110523, end: 20110602
  28. RECOMODULIN [Concomitant]
     Route: 065
     Dates: start: 20110813, end: 20110813
  29. ALBUMIN (HUMAN) [Concomitant]
     Route: 065
  30. VIDAZA [Suspect]
     Dosage: 35 MILLIGRAM
     Route: 041
     Dates: start: 20110615, end: 20110621
  31. ONON [Concomitant]
     Route: 065
     Dates: end: 20110813
  32. LASIX [Concomitant]
     Route: 065
     Dates: start: 20110506, end: 20110813
  33. SOLU-CORTEF [Concomitant]
     Route: 065
     Dates: start: 20110526, end: 20110811
  34. POTASSIUM CHLORIDE [Concomitant]
     Route: 065
     Dates: start: 20110606, end: 20110609
  35. SOLMALT [Concomitant]
     Route: 065
     Dates: start: 20110421, end: 20110427
  36. FAMOSTAGINE [Concomitant]
     Route: 065
     Dates: start: 20110812, end: 20110815
  37. MAGMITT [Concomitant]
     Route: 065
     Dates: start: 20110428
  38. MINOCYCLINE HCL [Concomitant]
     Route: 065
     Dates: start: 20110620, end: 20110815
  39. DEXTROSE [Concomitant]
     Route: 065
     Dates: start: 20110607, end: 20110610
  40. MEROPENEM HYDRATE [Concomitant]
     Route: 065
     Dates: start: 20110523, end: 20110526
  41. SILECE [Concomitant]
     Route: 065
     Dates: start: 20110623, end: 20110813
  42. DORIPENEM MONOHYDRATE [Concomitant]
     Route: 065
     Dates: start: 20110526, end: 20110812
  43. SANDOGLOBULIN [Concomitant]
     Route: 065
     Dates: start: 20110526, end: 20110610
  44. ACETAMINOPHEN [Concomitant]
     Route: 065
     Dates: start: 20110425, end: 20110813
  45. PURNOSIDE [Concomitant]
     Route: 065
     Dates: start: 20110426
  46. ADALAT [Concomitant]
     Route: 065
     Dates: end: 20110813
  47. HALOPERIDOL [Concomitant]
     Route: 065
     Dates: start: 20110613, end: 20110613
  48. CIPROFLOXACIN [Concomitant]
     Route: 065
     Dates: start: 20110725, end: 20110801
  49. XYLOCAINE [Concomitant]
     Route: 065
     Dates: start: 20110505
  50. BROCIN CODEINE [Concomitant]
     Route: 065
     Dates: start: 20110525
  51. MEROPENEM HYDRATE [Concomitant]
     Route: 065
     Dates: start: 20110613
  52. CEFEPIME HYDROCHLORIDE [Concomitant]
     Route: 065
     Dates: start: 20110430
  53. CEFEPIME HYDROCHLORIDE [Concomitant]
     Route: 065
     Dates: start: 20110811, end: 20110813
  54. MUCOSTA [Concomitant]
     Route: 065
     Dates: start: 20110801, end: 20110811
  55. VIDAZA [Suspect]
     Dosage: 35 MILLIGRAM
     Route: 041
     Dates: start: 20110727, end: 20110802
  56. ZYVOX [Concomitant]
     Route: 065
     Dates: start: 20110610, end: 20110620
  57. VANCOMYCIN HCL [Concomitant]
     Route: 065
     Dates: start: 20110531, end: 20110811
  58. VANCOMYCIN HCL [Concomitant]
     Route: 065
     Dates: start: 20110705, end: 20110713
  59. ALDACTONE [Concomitant]
     Route: 065
     Dates: start: 20110701, end: 20110813
  60. SOLDEM 3A [Concomitant]
     Route: 065
     Dates: start: 20110430, end: 20110815
  61. METHYLPREDNISOLONE SODIUM SUCCINATE [Concomitant]
     Route: 065
     Dates: start: 20110811, end: 20110815
  62. GASCOOL [Concomitant]
     Route: 065
     Dates: start: 20110811, end: 20110815

REACTIONS (8)
  - PSEUDOMEMBRANOUS COLITIS [None]
  - CARDIAC FAILURE [None]
  - NEPHRITIS [None]
  - FEBRILE NEUTROPENIA [None]
  - DEHYDRATION [None]
  - DISSEMINATED INTRAVASCULAR COAGULATION [None]
  - PNEUMONIA [None]
  - SYSTEMIC MYCOSIS [None]
